FAERS Safety Report 13519542 (Version 1)
Quarter: 2017Q2

REPORT INFORMATION
  Report Type: Spontaneous
  Country: AT (occurrence: AT)
  Receive Date: 20170505
  Receipt Date: 20170505
  Transmission Date: 20170830
  Serious: Yes (Hospitalization)
  Sender: FDA-Public Use
  Company Number: AT-B.I. PHARMACEUTICALS,INC./RIDGEFIELD-2017-BI-024643

PATIENT
  Age: 87 Year
  Sex: Male

DRUGS (1)
  1. PRADAXA [Suspect]
     Active Substance: DABIGATRAN ETEXILATE MESYLATE
     Indication: ANTICOAGULANT THERAPY
     Route: 065

REACTIONS (5)
  - Renal artery thrombosis [Unknown]
  - Renal failure [Unknown]
  - Melaena [Unknown]
  - Aortic aneurysm [Unknown]
  - Nephrocalcinosis [Unknown]
